FAERS Safety Report 20146112 (Version 1)
Quarter: 2021Q4

REPORT INFORMATION
  Report Type: Spontaneous
  Country: CN (occurrence: CN)
  Receive Date: 20211203
  Receipt Date: 20211203
  Transmission Date: 20220303
  Serious: Yes (Other)
  Sender: FDA-Public Use
  Company Number: CN-Merck Healthcare KGaA-9282654

PATIENT
  Age: 68 Year
  Sex: Male

DRUGS (2)
  1. ERBITUX [Suspect]
     Active Substance: CETUXIMAB
     Indication: Lung adenocarcinoma
     Dosage: 500 MG/M2, UNK
     Route: 065
     Dates: start: 20201001
  2. GEFITINIB [Concomitant]
     Active Substance: GEFITINIB
     Indication: Lung adenocarcinoma
     Dosage: 250 MG, DAILY
     Route: 065
     Dates: start: 20201001

REACTIONS (3)
  - Lung lobectomy [Recovered/Resolved]
  - Lymphadenectomy [Recovered/Resolved]
  - Off label use [Unknown]

NARRATIVE: CASE EVENT DATE: 20201201
